FAERS Safety Report 7923126-4 (Version None)
Quarter: 2011Q4

REPORT INFORMATION
  Report Type: 
  Country: None (occurrence: None)
  Receive Date: 20111117
  Receipt Date: 20110128
  Transmission Date: 20120403
  Serious: Yes (Other)
  Sender: FDA-Public Use
  Company Number: US-AMGEN-USASP2011005650

PATIENT
  Age: 48 Year
  Sex: Female

DRUGS (5)
  1. ENBREL [Suspect]
     Indication: IRRITABLE BOWEL SYNDROME
  2. ENBREL [Suspect]
     Indication: GASTROOESOPHAGEAL REFLUX DISEASE
  3. ENBREL [Suspect]
     Indication: CROHN'S DISEASE
  4. ENBREL [Suspect]
     Indication: PSORIASIS
     Dosage: 50 MG, QWK
     Dates: start: 20050101
  5. ENBREL [Suspect]
     Indication: HIATUS HERNIA

REACTIONS (8)
  - PUSTULAR PSORIASIS [None]
  - NASOPHARYNGITIS [None]
  - UPPER LIMB FRACTURE [None]
  - SKIN DISCOLOURATION [None]
  - PYREXIA [None]
  - RIB FRACTURE [None]
  - ABDOMINAL PAIN [None]
  - FALL [None]
